FAERS Safety Report 16849486 (Version 3)
Quarter: 2020Q4

REPORT INFORMATION
  Report Type: Spontaneous
  Country: DE (occurrence: DE)
  Receive Date: 20190925
  Receipt Date: 20201017
  Transmission Date: 20210113
  Serious: Yes (Other)
  Sender: FDA-Public Use
  Company Number: DE-AXELLIA-002709

PATIENT
  Age: 71 Year
  Sex: Male

DRUGS (16)
  1. GRAMICIDIN/NEOMYCIN/POLYMIXIN B [Suspect]
     Active Substance: GRAMICIDIN\NEOMYCIN\POLYMYXIN B SULFATE
     Indication: ENDOPHTHALMITIS
  2. MOXIFLOXACIN/MOXIFLOXACIN HYDROCHLORIDE [Suspect]
     Active Substance: MOXIFLOXACIN
     Indication: STAPHYLOCOCCAL INFECTION
     Dosage: UNK
     Route: 048
  3. CEFTAZIDIME/CEFTAZIDIME PENTAHYDRATE [Suspect]
     Active Substance: CEFTAZIDIME
     Indication: ULCERATIVE KERATITIS
     Dosage: UNK
     Route: 050
  4. VANCOMYCIN [Suspect]
     Active Substance: VANCOMYCIN
     Indication: ULCERATIVE KERATITIS
     Dosage: UNK
     Route: 050
  5. MINOCYCLINE [Suspect]
     Active Substance: MINOCYCLINE HYDROCHLORIDE
     Indication: STAPHYLOCOCCAL INFECTION
     Route: 048
  6. MOXIFLOXACIN. [Suspect]
     Active Substance: MOXIFLOXACIN
     Indication: ENDOPHTHALMITIS
  7. GRAMICIDIN/NEOMYCIN/POLYMYXIN B [Suspect]
     Active Substance: GRAMICIDIN\NEOMYCIN\POLYMYXIN B SULFATE
     Indication: STAPHYLOCOCCAL INFECTION
     Dosage: UNK
     Route: 061
  8. CYCLOPENTOLATE. [Suspect]
     Active Substance: CYCLOPENTOLATE
     Indication: STAPHYLOCOCCAL INFECTION
     Dosage: UNK
     Route: 061
  9. LEVOFLOXACIN. [Suspect]
     Active Substance: LEVOFLOXACIN
     Indication: STAPHYLOCOCCAL INFECTION
     Dosage: UNK
     Route: 061
  10. TIMOLOL. [Suspect]
     Active Substance: TIMOLOL
     Indication: STAPHYLOCOCCAL INFECTION
  11. DEXAMETHASONE. [Suspect]
     Active Substance: DEXAMETHASONE
     Indication: STAPHYLOCOCCAL INFECTION
     Route: 050
  12. TIMOLOL. [Suspect]
     Active Substance: TIMOLOL
     Indication: ENDOPHTHALMITIS
     Dosage: UNK
     Route: 061
  13. DEXAMETHASONE. [Suspect]
     Active Substance: DEXAMETHASONE
     Indication: ULCERATIVE KERATITIS
     Dosage: UNK
     Route: 061
  14. MINOCYCLINE [Suspect]
     Active Substance: MINOCYCLINE HYDROCHLORIDE
     Indication: ENDOPHTHALMITIS
     Dosage: UNK
     Route: 048
  15. LEVOFLOXACIN. [Suspect]
     Active Substance: LEVOFLOXACIN
     Indication: ULCERATIVE KERATITIS
     Route: 050
  16. MINOCYCLINE [Suspect]
     Active Substance: MINOCYCLINE HYDROCHLORIDE
     Indication: ULCERATIVE KERATITIS
     Route: 048

REACTIONS (1)
  - Drug ineffective [Unknown]
